FAERS Safety Report 9235721 (Version 1)
Quarter: 2013Q2

REPORT INFORMATION
  Report Type: Spontaneous
  Country: AU (occurrence: AU)
  Receive Date: 20130417
  Receipt Date: 20130417
  Transmission Date: 20140414
  Serious: Yes (Life-Threatening)
  Sender: FDA-Public Use
  Company Number: AU-009507513-1304AUS007358

PATIENT
  Age: 36 Year
  Sex: Female
  Weight: 102 kg

DRUGS (6)
  1. ESMERON [Suspect]
     Indication: CHOLECYSTECTOMY
     Dosage: 50 MG, UNK
     Route: 042
     Dates: start: 20130131, end: 20130131
  2. TIMETIN [Suspect]
     Dosage: 3.1 G, UNK
     Route: 042
     Dates: start: 20130131, end: 20130131
  3. FENTANYL [Concomitant]
     Dosage: 75 MICROGRAM, UNK
  4. MIDAZOLAM [Concomitant]
     Dosage: 1 MG, UNK
  5. PROPOFOL [Concomitant]
  6. MORPHINE [Concomitant]

REACTIONS (3)
  - Eye swelling [Recovered/Resolved]
  - Blood pressure decreased [Recovered/Resolved]
  - Rash erythematous [Recovered/Resolved]
